FAERS Safety Report 19771124 (Version 3)
Quarter: 2021Q3

REPORT INFORMATION
  Report Type: Report from Study
  Country: CO (occurrence: CO)
  Receive Date: 20210831
  Receipt Date: 20210916
  Transmission Date: 20211014
  Serious: Yes (Hospitalization)
  Sender: FDA-Public Use
  Company Number: NVSC2021CO127553

PATIENT
  Age: 55 Year
  Sex: Female
  Weight: 53 kg

DRUGS (3)
  1. COSENTYX [Suspect]
     Active Substance: SECUKINUMAB
     Indication: ANKYLOSING SPONDYLITIS
     Dosage: 150 MG, QMO
     Route: 058
  2. LOSARTAN POTASSIUM. [Suspect]
     Active Substance: LOSARTAN POTASSIUM
     Indication: HYPERTENSION
     Dosage: UNK, Q12H (STARTED 3 YEARS AGO)
     Route: 048
  3. COSENTYX [Suspect]
     Active Substance: SECUKINUMAB
     Dosage: 150 MG, QMO (STARTED 15 DAYS AGO)
     Route: 058

REACTIONS (11)
  - Nausea [Unknown]
  - Illness [Unknown]
  - Discouragement [Unknown]
  - Pain [Unknown]
  - Fatigue [Unknown]
  - Asphyxia [Unknown]
  - Abdominal pain upper [Unknown]
  - Pain in extremity [Unknown]
  - Dizziness [Unknown]
  - SARS-CoV-2 test positive [Unknown]
  - Headache [Unknown]

NARRATIVE: CASE EVENT DATE: 202107
